FAERS Safety Report 8428052-2 (Version None)
Quarter: 2012Q2

REPORT INFORMATION
  Report Type: 
  Country: None (occurrence: None)
  Receive Date: 20120611
  Receipt Date: 20120607
  Transmission Date: 20120825
  Serious: No
  Sender: FDA-Public Use
  Company Number: US-TEVA-340885USA

PATIENT
  Sex: Female
  Weight: 95.794 kg

DRUGS (3)
  1. PLAN B ONE-STEP [Suspect]
     Indication: POST COITAL CONTRACEPTION
     Dosage: 1.5 MILLIGRAM;
     Route: 048
     Dates: start: 20120519, end: 20120519
  2. VITAMIN D [Concomitant]
     Indication: MEDICAL DIET
  3. RESVERATROL [Concomitant]
     Indication: MEDICAL DIET

REACTIONS (2)
  - WEIGHT INCREASED [None]
  - BREAST PAIN [None]
